FAERS Safety Report 19793888 (Version 1)
Quarter: 2021Q3

REPORT INFORMATION
  Report Type: Spontaneous
  Country: CN (occurrence: CN)
  Receive Date: 20210906
  Receipt Date: 20210906
  Transmission Date: 20211014
  Serious: Yes (Hospitalization, Other)
  Sender: FDA-Public Use
  Company Number: CN-AMGEN-CHNSP2021135289

PATIENT
  Age: 51 Year
  Sex: Male
  Weight: 50 kg

DRUGS (6)
  1. DOCETAXEL. [Suspect]
     Active Substance: DOCETAXEL
     Indication: CHEMOTHERAPY
     Dosage: 140 MILLIGRAM
     Route: 042
     Dates: start: 20210714, end: 20210714
  2. TISLELIZUMAB [Suspect]
     Active Substance: TISLELIZUMAB
     Indication: PROPHYLAXIS
     Dosage: 200 MILLIGRAM
     Route: 042
     Dates: start: 20210717, end: 20210717
  3. SODIUM CHLORIDE. [Concomitant]
     Active Substance: SODIUM CHLORIDE
     Dosage: 250 MILLILITER
     Route: 042
     Dates: start: 20210714, end: 20210714
  4. ABIRATERONE ACETATE. [Suspect]
     Active Substance: ABIRATERONE ACETATE
     Indication: CHEMOTHERAPY
     Dosage: 1000 MILLIGRAM
     Route: 048
     Dates: start: 20210713, end: 20210722
  5. XGEVA [Suspect]
     Active Substance: DENOSUMAB
     Indication: PROPHYLAXIS
     Dosage: 120 MILLIGRAM
     Route: 058
     Dates: start: 20210714, end: 20210714
  6. SODIUM CHLORIDE. [Concomitant]
     Active Substance: SODIUM CHLORIDE
     Dosage: 100 MILLILITER
     Route: 042
     Dates: start: 20210717, end: 20210717

REACTIONS (1)
  - Pancytopenia [Unknown]

NARRATIVE: CASE EVENT DATE: 20210720
